FAERS Safety Report 9702728 (Version 2)
Quarter: 2014Q1

REPORT INFORMATION
  Report Type: Spontaneous
  Country: SE (occurrence: SE)
  Receive Date: 20131121
  Receipt Date: 20140124
  Transmission Date: 20141002
  Serious: Yes (Disabling)
  Sender: FDA-Public Use
  Company Number: SE-WATSON-2013-21463

PATIENT
  Age: 26 Year
  Sex: Male
  Weight: 95 kg

DRUGS (1)
  1. CIPROFLOXACIN ACTAVIS [Suspect]
     Indication: PROSTATITIS
     Dosage: 500 MG, BID
     Route: 048
     Dates: start: 20130614, end: 20130615

REACTIONS (12)
  - Vision blurred [Not Recovered/Not Resolved]
  - Nausea [Not Recovered/Not Resolved]
  - Headache [Not Recovered/Not Resolved]
  - Dizziness [Not Recovered/Not Resolved]
  - Cognitive disorder [Not Recovered/Not Resolved]
  - Panic attack [Not Recovered/Not Resolved]
  - Insomnia [Not Recovered/Not Resolved]
  - Dry mouth [Not Recovered/Not Resolved]
  - Arthralgia [Not Recovered/Not Resolved]
  - Formication [Not Recovered/Not Resolved]
  - Paraesthesia [Not Recovered/Not Resolved]
  - Muscle twitching [Not Recovered/Not Resolved]
